FAERS Safety Report 9006090 (Version 1)
Quarter: 2013Q1

REPORT INFORMATION
  Report Type: Spontaneous
  Country: US (occurrence: US)
  Receive Date: 20130109
  Receipt Date: 20130109
  Transmission Date: 20140127
  Serious: Yes (Death, Other)
  Sender: FDA-Public Use
  Company Number: CHPA2013US000669

PATIENT
  Age: 58 Year
  Sex: Female

DRUGS (1)
  1. 4 WAY FAST ACTING NASAL SPRAY [Suspect]
     Indication: NASAL CONGESTION
     Dosage: UNK, ONCE OR TWICE DAILY
     Route: 045

REACTIONS (2)
  - Brain neoplasm [Fatal]
  - Drug dependence [Unknown]
